FAERS Safety Report 9004725 (Version 1)
Quarter: 2013Q1

REPORT INFORMATION
  Report Type: Spontaneous
  Country: US (occurrence: None)
  Receive Date: 20130104
  Receipt Date: 20130104
  Transmission Date: 20140127
  Serious: No
  Sender: FDA-Public Use
  Company Number: None

PATIENT
  Age: 36 Year
  Sex: Female
  Weight: 56.7 kg

DRUGS (1)
  1. EPINEPHRINE [Suspect]
     Indication: HAEMORRHAGE
     Dosage: ONE VIAL PER CASE
     Route: 058
     Dates: start: 20121227, end: 20121227

REACTIONS (2)
  - Drug ineffective [None]
  - Procedural haemorrhage [None]
